FAERS Safety Report 14627607 (Version 1)
Quarter: 2018Q1

REPORT INFORMATION
  Report Type: Spontaneous
  Country: US (occurrence: US)
  Receive Date: 20180312
  Receipt Date: 20180312
  Transmission Date: 20180509
  Serious: Yes (Other)
  Sender: FDA-Public Use
  Company Number: US-SHIRE-US201806274

PATIENT
  Age: 52 Year
  Sex: Female
  Weight: 52.15 kg

DRUGS (6)
  1. ADDERALL XR [Suspect]
     Active Substance: AMPHETAMINE ASPARTATE\AMPHETAMINE SULFATE\DEXTROAMPHETAMINE SACCHARATE\DEXTROAMPHETAMINE SULFATE
     Dosage: 30 MG, 1X/DAY:QD
     Route: 048
     Dates: start: 201604, end: 201604
  2. ADDERALL XR [Suspect]
     Active Substance: AMPHETAMINE ASPARTATE\AMPHETAMINE SULFATE\DEXTROAMPHETAMINE SACCHARATE\DEXTROAMPHETAMINE SULFATE
     Dosage: 25 MG, 1X/DAY:QD
     Route: 048
     Dates: start: 201712
  3. ADDERALL XR [Suspect]
     Active Substance: AMPHETAMINE ASPARTATE\AMPHETAMINE SULFATE\DEXTROAMPHETAMINE SACCHARATE\DEXTROAMPHETAMINE SULFATE
     Indication: ATTENTION DEFICIT/HYPERACTIVITY DISORDER
     Dosage: 20 MG, 1X/DAY:QD
     Route: 048
     Dates: start: 201408, end: 201408
  4. ADDERALL XR [Suspect]
     Active Substance: AMPHETAMINE ASPARTATE\AMPHETAMINE SULFATE\DEXTROAMPHETAMINE SACCHARATE\DEXTROAMPHETAMINE SULFATE
     Dosage: 25 MG, 1X/DAY:QD
     Route: 048
     Dates: start: 201604, end: 201705
  5. ADDERALL XR [Suspect]
     Active Substance: AMPHETAMINE ASPARTATE\AMPHETAMINE SULFATE\DEXTROAMPHETAMINE SACCHARATE\DEXTROAMPHETAMINE SULFATE
     Dosage: 25 MG, 1X/DAY:QD
     Route: 048
     Dates: start: 201409, end: 201604
  6. ADDERALL XR [Suspect]
     Active Substance: AMPHETAMINE ASPARTATE\AMPHETAMINE SULFATE\DEXTROAMPHETAMINE SACCHARATE\DEXTROAMPHETAMINE SULFATE
     Dosage: 30 MG, 1X/DAY:QD
     Route: 048
     Dates: start: 201705, end: 201712

REACTIONS (16)
  - Feeling abnormal [Unknown]
  - Underdose [Recovered/Resolved]
  - Loss of personal independence in daily activities [Unknown]
  - Drug dose omission [Recovered/Resolved]
  - Disturbance in attention [Unknown]
  - Pain [Unknown]
  - Neuropathic muscular atrophy [Not Recovered/Not Resolved]
  - Drug ineffective [Unknown]
  - Neuralgia [Unknown]
  - Dry mouth [Unknown]
  - Depression [Recovered/Resolved]
  - Blood pressure normal [Not Recovered/Not Resolved]
  - Drug tolerance decreased [Recovered/Resolved]
  - Feeling abnormal [Not Recovered/Not Resolved]
  - Drug interaction [Recovered/Resolved]
  - Feeling hot [Unknown]

NARRATIVE: CASE EVENT DATE: 201408
